FAERS Safety Report 5780275-7 (Version None)
Quarter: 2008Q2

REPORT INFORMATION
  Report Type: 
  Country: None (occurrence: None)
  Receive Date: 20080620
  Receipt Date: 20080620
  Transmission Date: 20081010
  Serious: Yes (Hospitalization)
  Sender: FDA-Public Use
  Company Number: PHHO2007AU09008

PATIENT
  Sex: Male
  Weight: 83.2 kg

DRUGS (3)
  1. ZOLEDRONIC ACID [Suspect]
     Indication: OSTEITIS DEFORMANS
     Dosage: 5MG
     Dates: start: 20030930
  2. WARFARIN SODIUM [Concomitant]
  3. MINIPRESS [Concomitant]

REACTIONS (3)
  - CELLULITIS [None]
  - INFLAMMATION [None]
  - OEDEMA PERIPHERAL [None]
